FAERS Safety Report 19495878 (Version 1)
Quarter: 2021Q3

REPORT INFORMATION
  Report Type: Spontaneous
  Country: SE (occurrence: SE)
  Receive Date: 20210706
  Receipt Date: 20210706
  Transmission Date: 20211014
  Serious: Yes (Other)
  Sender: FDA-Public Use
  Company Number: SE-SA-2021SA214003

PATIENT
  Age: 69 Year
  Sex: Male

DRUGS (19)
  1. ZOLEDRONIC ACID ANHYDROUS [Concomitant]
     Active Substance: ZOLEDRONIC ACID ANHYDROUS
     Dosage: 0,0381 MG/ML
     Route: 042
     Dates: start: 20191119
  2. ALVEDON [Concomitant]
     Active Substance: ACETAMINOPHEN
     Dosage: 1?2 TABLETS IF NEEDED, MAXIMUM 8 TABLETS PER DAY
     Route: 048
  3. NOVOPULMON [Concomitant]
     Active Substance: BUDESONIDE
     Dosage: FORM: INHALATION POWDER
     Route: 065
     Dates: start: 20170120
  4. LOPERAMIDE [Concomitant]
     Active Substance: LOPERAMIDE
     Dosage: 1 CAPSULE IF NEEDED, A MAXIMUM OF 8 CAPSULES PER DAY
     Route: 048
     Dates: start: 20210317
  5. OMEPRAZOLE. [Concomitant]
     Active Substance: OMEPRAZOLE
     Dosage: 20 MG, QD
     Route: 048
     Dates: start: 20200211
  6. VENTILASTIN [Concomitant]
     Active Substance: ALBUTEROL SULFATE
     Dosage: 1 INHALATION IF NECESSARY, A MAXIMUM OF 8 INHALATIONS PER DAY
     Route: 055
     Dates: start: 20170120
  7. CABAZITAXEL [Suspect]
     Active Substance: CABAZITAXEL
     Dosage: COURSE OF TREATMENT 2
     Route: 065
     Dates: start: 20210412
  8. VISCOTEARS [Concomitant]
     Active Substance: CARBOMER
     Dosage: 1?2 DROPS IF NECESSARY IN BOTH EYES FORM: EYE GEL IN SINGLE?DOSE CONTAINERS
     Route: 065
     Dates: start: 20200610
  9. DESLORATADINE. [Concomitant]
     Active Substance: DESLORATADINE
     Dosage: 2 TABLETS ARE TAKEN 12 AND 1 HOUR BEFORE THE PLANNED CHEMOTHERAPY TREATMENT
     Route: 048
     Dates: start: 20210317
  10. ALLOPURINOL. [Concomitant]
     Active Substance: ALLOPURINOL
     Dosage: 100 MG, QD
     Route: 048
     Dates: start: 20160525
  11. PARAFLEX [Concomitant]
     Active Substance: CHLORZOXAZONE
     Dosage: 1?2 TABLETS IF NEEDED 1?3 TIMES DAILY
     Route: 048
     Dates: start: 20160525
  12. OXASCAND [Concomitant]
     Active Substance: OXAZEPAM
     Dosage: 1 TABLET IF NEEDED, MAXIMUM 3 TABLETS PER DAY
     Route: 048
     Dates: start: 20210322
  13. DICLOFENAC [Concomitant]
     Active Substance: DICLOFENAC
     Dosage: 1 SUPPOSITORY IF NEEDED
     Route: 054
     Dates: start: 20160524
  14. LEVAXIN [Concomitant]
     Active Substance: LEVOTHYROXINE SODIUM
     Dosage: 25 UG, QD
     Route: 048
     Dates: start: 20170621
  15. PAMORELIN [Concomitant]
     Active Substance: TRIPTORELIN PAMOATE
     Dosage: 22.5 MG I/M EVERY 6 MONTHS DRUG_DOSAGE_NUMBER : 1 DRUG_DOSAGE_UNIT : NOT REPORTED FORM: POWDER AND S
     Route: 030
     Dates: start: 20160715
  16. OXYCODONE [Concomitant]
     Active Substance: OXYCODONE
     Dosage: 1 CAPSULE IF NEEDED, MAXIMUM 6 CAPSULES PER DAY
     Route: 048
     Dates: start: 20201026
  17. BETAPRED [Concomitant]
     Active Substance: BETAMETHASONE SODIUM PHOSPHATE
     Dosage: 16 TABLETS ARE TAKEN 12 AND 1 HOUR BEFORE THE PLANNED CHEMOTHERAPY TREATMENT
     Route: 048
     Dates: start: 20210318
  18. OCULENTUM SIMPLEX [Concomitant]
     Dosage: 1 DROP FOR THE NIGHT IN THE LEFT EYE DRUG_DOSAGE_NUMBER : 1 DRUG_DOSAGE_UNIT : NOT REPORTED
     Route: 065
     Dates: start: 20200706
  19. MOVICOL [Concomitant]
     Active Substance: POLYETHYLENE GLYCOL 3350\POTASSIUM CHLORIDE\SODIUM BICARBONATE\SODIUM CHLORIDE
     Dosage: 1 SACHET IF NECESSARY NO MORE THAN 3 SACHETS PER DAY
     Route: 048
     Dates: start: 20201211

REACTIONS (2)
  - Feeling hot [Recovered/Resolved]
  - Chest discomfort [Recovered/Resolved]

NARRATIVE: CASE EVENT DATE: 20210412
